FAERS Safety Report 10586097 (Version 3)
Quarter: 2015Q1

REPORT INFORMATION
  Report Type: Report from Study
  Country: US (occurrence: US)
  Receive Date: 20141115
  Receipt Date: 20150212
  Transmission Date: 20150720
  Serious: Yes (Other)
  Sender: FDA-Public Use
  Company Number: US-ASTRAZENECA-2014SE85724

PATIENT
  Age: 76 Year
  Sex: Female
  Weight: 61.2 kg

DRUGS (25)
  1. NEXIUM [Suspect]
     Active Substance: ESOMEPRAZOLE MAGNESIUM
     Indication: GASTROOESOPHAGEAL REFLUX DISEASE
     Route: 048
     Dates: start: 20131120
  2. NEXIUM [Suspect]
     Active Substance: ESOMEPRAZOLE MAGNESIUM
     Indication: GASTROOESOPHAGEAL REFLUX DISEASE
     Route: 048
     Dates: start: 20131120
  3. XIFAXAN [Concomitant]
     Active Substance: RIFAXIMIN
     Route: 048
     Dates: start: 20130315
  4. IRON [Concomitant]
     Active Substance: IRON
     Route: 048
  5. NEXIUM [Suspect]
     Active Substance: ESOMEPRAZOLE MAGNESIUM
     Indication: GASTROOESOPHAGEAL REFLUX DISEASE
     Route: 048
     Dates: start: 2011
  6. METOCLOPRAMIDE. [Concomitant]
     Active Substance: METOCLOPRAMIDE
     Route: 048
     Dates: start: 20140414
  7. DETROL [Concomitant]
     Active Substance: TOLTERODINE TARTRATE
     Route: 048
  8. BENTYL [Concomitant]
     Active Substance: DICYCLOMINE HYDROCHLORIDE
     Route: 048
     Dates: start: 20140829
  9. NEXIUM [Suspect]
     Active Substance: ESOMEPRAZOLE MAGNESIUM
     Indication: GASTROOESOPHAGEAL REFLUX DISEASE
     Route: 048
     Dates: start: 2011
  10. NEXIUM [Suspect]
     Active Substance: ESOMEPRAZOLE MAGNESIUM
     Indication: GASTROOESOPHAGEAL REFLUX DISEASE
     Route: 048
     Dates: start: 20140829
  11. NEXIUM [Suspect]
     Active Substance: ESOMEPRAZOLE MAGNESIUM
     Indication: GASTROOESOPHAGEAL REFLUX DISEASE
     Route: 048
     Dates: start: 20140829
  12. XARELTO [Concomitant]
     Active Substance: RIVAROXABAN
     Route: 048
  13. LEVOTHYROXINE SODIUM. [Concomitant]
     Active Substance: LEVOTHYROXINE SODIUM
     Route: 048
     Dates: start: 20140303
  14. LYRICA [Concomitant]
     Active Substance: PREGABALIN
     Route: 048
     Dates: start: 20140224
  15. IMIPRAMINE [Concomitant]
     Active Substance: IMIPRAMINE
     Route: 048
     Dates: start: 20130821
  16. AMBIEN [Concomitant]
     Active Substance: ZOLPIDEM TARTRATE
     Route: 048
     Dates: start: 20141121
  17. SOTALOL. [Concomitant]
     Active Substance: SOTALOL
     Route: 048
     Dates: start: 20140414
  18. METOPROLOL TARTRATE. [Concomitant]
     Active Substance: METOPROLOL TARTRATE
     Route: 048
  19. DILTIAZEM [Concomitant]
     Active Substance: DILTIAZEM
     Route: 048
  20. DICYCLOMINE [Concomitant]
     Active Substance: DICYCLOMINE HYDROCHLORIDE
     Dates: start: 20140414
  21. VITAMIN D3 [Concomitant]
     Active Substance: CHOLECALCIFEROL
     Route: 048
  22. PROPAFENONE. [Concomitant]
     Active Substance: PROPAFENONE
     Route: 048
     Dates: start: 20131028
  23. POTASSIUM CHLORIDE. [Concomitant]
     Active Substance: POTASSIUM CHLORIDE
     Route: 048
     Dates: start: 20140414
  24. CYMBALTA [Concomitant]
     Active Substance: DULOXETINE HYDROCHLORIDE
     Route: 048
     Dates: start: 20130715
  25. CALCIUM [Concomitant]
     Active Substance: CALCIUM
     Route: 048

REACTIONS (34)
  - Cardiomyopathy [Unknown]
  - Haematuria [Unknown]
  - Abdominal pain [Unknown]
  - Myalgia [Unknown]
  - Sensation of foreign body [Unknown]
  - Drug ineffective [Unknown]
  - Irritable bowel syndrome [Unknown]
  - Pain in extremity [Unknown]
  - Osteoporosis [Unknown]
  - Fall [Unknown]
  - Pancreatic atrophy [Unknown]
  - Myocardial infarction [Unknown]
  - Abdominal distension [Unknown]
  - Gastrooesophageal reflux disease [Unknown]
  - Hypertension [Unknown]
  - Hip fracture [Unknown]
  - Deep vein thrombosis [Unknown]
  - Pulmonary embolism [Unknown]
  - Obstructive airways disorder [Unknown]
  - Muscle spasms [Unknown]
  - Off label use [Unknown]
  - Drug dose omission [Unknown]
  - Hypothyroidism [Unknown]
  - Dyspepsia [Unknown]
  - Arrhythmia [Unknown]
  - Femur fracture [Unknown]
  - Flatulence [Unknown]
  - Weight decreased [Unknown]
  - Angina pectoris [Unknown]
  - Urinary tract infection [Unknown]
  - Pain [Unknown]
  - Groin pain [Unknown]
  - Back pain [Unknown]
  - Mobility decreased [Unknown]

NARRATIVE: CASE EVENT DATE: 2014
